FAERS Safety Report 4637161-5 (Version None)
Quarter: 2005Q2

REPORT INFORMATION
  Report Type: 
  Country: None (occurrence: None)
  Receive Date: 20050325
  Receipt Date: 20041130
  Transmission Date: 20051028
  Serious: No
  Sender: FDA-Public Use
  Company Number: USA040977994

PATIENT
  Age: 57 Year
  Sex: Female
  Weight: 45 kg

DRUGS (7)
  1. FORTEO [Suspect]
     Indication: OSTEOPOROSIS
     Dosage: 20 UG DAY
     Dates: start: 20040827
  2. CITRICAL(CALCIUM CARBONATE) [Concomitant]
  3. VITAMIN B50 [Concomitant]
  4. FOLIC ACID [Concomitant]
  5. FOLATE SODIUM [Concomitant]
  6. VITAMIN B COMPLEX CAP [Concomitant]
  7. CALCIUM GLUCONATE [Concomitant]

REACTIONS (6)
  - BLOOD ALKALINE PHOSPHATASE INCREASED [None]
  - DYSPEPSIA [None]
  - INJECTION SITE HAEMORRHAGE [None]
  - INJECTION SITE PAIN [None]
  - INJECTION SITE ULCER [None]
  - NAUSEA [None]
